FAERS Safety Report 7048065-5 (Version None)
Quarter: 2010Q4

REPORT INFORMATION
  Report Type: 
  Country: None (occurrence: None)
  Receive Date: 20101015
  Receipt Date: 20101007
  Transmission Date: 20110411
  Serious: Yes (Death, Life-Threatening, Hospitalization)
  Sender: FDA-Public Use
  Company Number: B0678142A

PATIENT
  Sex: Female

DRUGS (5)
  1. ARIXTRA [Suspect]
     Indication: ATRIAL FIBRILLATION
     Route: 058
     Dates: end: 20100811
  2. PREVISCAN [Suspect]
     Indication: ATRIAL FIBRILLATION
     Route: 048
     Dates: end: 20100811
  3. SALBUTAMOL [Concomitant]
     Route: 065
  4. DILTIAZEM [Concomitant]
     Route: 065
  5. BUDESONIDE [Concomitant]
     Route: 065

REACTIONS (13)
  - BRAIN DEATH [None]
  - BRAIN HERNIATION [None]
  - CEREBRAL HAEMATOMA [None]
  - CEREBROVASCULAR ACCIDENT [None]
  - COMA [None]
  - DRUG INTERACTION [None]
  - HEADACHE [None]
  - HEMIPLEGIA [None]
  - INTERNATIONAL NORMALISED RATIO INCREASED [None]
  - MYDRIASIS [None]
  - OFF LABEL USE [None]
  - PROTHROMBIN LEVEL DECREASED [None]
  - SUBARACHNOID HAEMORRHAGE [None]
